FAERS Safety Report 10451633 (Version 1)
Quarter: 2014Q3

REPORT INFORMATION
  Report Type: Spontaneous
  Country: CA (occurrence: CA)
  Receive Date: 20140914
  Receipt Date: 20140914
  Transmission Date: 20150326
  Serious: Yes (Death, Other)
  Sender: FDA-Public Use
  Company Number: CA-AMGEN-CANSP2014069318

PATIENT
  Age: 51 Year
  Sex: Male

DRUGS (6)
  1. METFORMIN [Concomitant]
     Active Substance: METFORMIN HYDROCHLORIDE
     Dosage: UNK
  2. LASIX [Concomitant]
     Active Substance: FUROSEMIDE
     Dosage: UNK
  3. CRESTOR [Concomitant]
     Active Substance: ROSUVASTATIN CALCIUM
     Dosage: UNK
  4. TECTA [Concomitant]
     Active Substance: PANTOPRAZOLE MAGNESIUM
     Dosage: UNK
  5. REPLAVITE                          /00058902/ [Concomitant]
     Dosage: UNK
  6. ARANESP [Suspect]
     Active Substance: DARBEPOETIN ALFA
     Indication: RENAL FAILURE CHRONIC
     Dosage: 100 MUG, QWK
     Route: 065
     Dates: end: 2014

REACTIONS (2)
  - Renal impairment [Unknown]
  - Death [Fatal]

NARRATIVE: CASE EVENT DATE: 2014
